FAERS Safety Report 9562104 (Version 1)
Quarter: 2013Q3

REPORT INFORMATION
  Report Type: Spontaneous
  Country: BR (occurrence: BR)
  Receive Date: 20130927
  Receipt Date: 20130927
  Transmission Date: 20140515
  Serious: Yes (Hospitalization, Other)
  Sender: FDA-Public Use
  Company Number: BR-PFIZER INC-2013273453

PATIENT
  Age: 68 Year
  Sex: Female
  Weight: 81 kg

DRUGS (3)
  1. LIPITOR [Suspect]
     Dosage: 20 MG (ONE TABLET), 1X/DAY
     Dates: start: 201102
  2. FLUOXETINE [Concomitant]
  3. OMEPRAZOLE [Concomitant]

REACTIONS (3)
  - Breast cancer [Unknown]
  - Renal cancer [Unknown]
  - Depression [Unknown]
